FAERS Safety Report 5941605-6 (Version None)
Quarter: 2008Q4

REPORT INFORMATION
  Report Type: 
  Country: None (occurrence: None)
  Receive Date: 20081104
  Receipt Date: 20081104
  Transmission Date: 20090506
  Serious: Yes (Other)
  Sender: FDA-Public Use
  Company Number: None

PATIENT
  Age: 61 Year
  Sex: Female
  Weight: 56.6996 kg

DRUGS (1)
  1. ATIVAN [Suspect]
     Indication: AGITATION
     Dosage: 1 MG EVERY 4 HOURS PRN IV
     Route: 042
     Dates: start: 20080328, end: 20080408

REACTIONS (1)
  - RESPIRATORY DEPRESSION [None]
